FAERS Safety Report 25486834 (Version 2)
Quarter: 2025Q3

REPORT INFORMATION
  Report Type: Report from Study
  Country: EU (occurrence: EU)
  Receive Date: 20250627
  Receipt Date: 20250701
  Transmission Date: 20251021
  Serious: Yes (Death, Other)
  Sender: AMGEN
  Company Number: EU-AMGEN-HRVSP2025123173

PATIENT
  Sex: Female

DRUGS (2)
  1. SOTORASIB [Suspect]
     Active Substance: SOTORASIB
     Indication: Lung adenocarcinoma
     Route: 065
     Dates: start: 202107, end: 202211
  2. SOTORASIB [Suspect]
     Active Substance: SOTORASIB
     Indication: K-ras gene mutation

REACTIONS (2)
  - Lung adenocarcinoma [Fatal]
  - Respiratory failure [Unknown]
